FAERS Safety Report 26083389 (Version 2)
Quarter: 2025Q4

REPORT INFORMATION
  Report Type: Spontaneous
  Country: EU (occurrence: EU)
  Receive Date: 20251124
  Receipt Date: 20251202
  Transmission Date: 20260117
  Serious: Yes (Hospitalization)
  Sender: PFIZER
  Company Number: EU-PFIZER INC-PV202500136610

PATIENT
  Age: 8 Year
  Sex: Male

DRUGS (2)
  1. METHOTREXATE SODIUM [Suspect]
     Active Substance: METHOTREXATE SODIUM
     Indication: Psoriasis
     Dosage: 5 MG, DAILY (25 MG, CUMULATIVE DOSE)
     Route: 048
  2. FOLIC ACID [Concomitant]
     Active Substance: FOLIC ACID
     Indication: Psoriasis
     Dosage: UNK

REACTIONS (11)
  - Wrong dose [Recovering/Resolving]
  - Toxicity to various agents [Recovering/Resolving]
  - Skin lesion [Recovering/Resolving]
  - Skin erosion [Recovering/Resolving]
  - Skin ulcer [Recovering/Resolving]
  - Mucosal inflammation [Recovering/Resolving]
  - Stomatitis [Recovering/Resolving]
  - Rash erythematous [Recovering/Resolving]
  - Lymphopenia [Recovering/Resolving]
  - Hypoalbuminaemia [Recovering/Resolving]
  - Off label use [Unknown]
